FAERS Safety Report 15884223 (Version 2)
Quarter: 2019Q1

REPORT INFORMATION
  Report Type: Spontaneous
  Country: US (occurrence: US)
  Receive Date: 20190129
  Receipt Date: 20190211
  Transmission Date: 20190417
  Serious: Yes (Other)
  Sender: FDA-Public Use
  Company Number: US-PFIZER INC-2018070927

PATIENT
  Age: 87 Year
  Sex: Female

DRUGS (3)
  1. SOMAVERT [Suspect]
     Active Substance: PEGVISOMANT
     Indication: ACROMEGALY
     Dosage: 15 MG, DAILY
     Dates: start: 20100603
  2. SOMAVERT [Suspect]
     Active Substance: PEGVISOMANT
     Indication: GLUCOSE TOLERANCE IMPAIRED
     Dosage: UNK
     Dates: start: 2017
  3. SOMAVERT [Suspect]
     Active Substance: PEGVISOMANT
     Indication: HYPERPARATHYROIDISM PRIMARY
     Dosage: 20 MG, DAILY
     Dates: start: 20100603

REACTIONS (10)
  - Blood glucose increased [Unknown]
  - Blood potassium decreased [Unknown]
  - Overweight [Unknown]
  - Glycosylated haemoglobin increased [Unknown]
  - Blood creatinine increased [Unknown]
  - Protein S decreased [Unknown]
  - Bone density increased [Unknown]
  - Insulin-like growth factor increased [Unknown]
  - Cognitive disorder [Unknown]
  - Glomerular filtration rate decreased [Unknown]

NARRATIVE: CASE EVENT DATE: 20180109
